FAERS Safety Report 19117782 (Version 3)
Quarter: 2024Q1

REPORT INFORMATION
  Report Type: Spontaneous
  Country: FR (occurrence: FR)
  Receive Date: 20210409
  Receipt Date: 20240308
  Transmission Date: 20240410
  Serious: Yes (Hospitalization, Other)
  Sender: FDA-Public Use
  Company Number: None

PATIENT
  Age: 64 Year
  Sex: Male
  Weight: 116 kg

DRUGS (5)
  1. LINEZOLID [Suspect]
     Active Substance: LINEZOLID
     Indication: Liver transplant
     Dosage: 1200 MG, DAILY
     Route: 048
     Dates: start: 20210209, end: 20210214
  2. LANSOPRAZOLE [Suspect]
     Active Substance: LANSOPRAZOLE
     Indication: Intestinal ulcer
     Dosage: 30 MG, 1X/DAY
     Route: 048
     Dates: start: 20210210, end: 20210223
  3. CELLCEPT [Suspect]
     Active Substance: MYCOPHENOLATE MOFETIL
     Indication: Liver transplant
     Dosage: 2 G, 1X/DAY
     Route: 048
     Dates: start: 20210209, end: 20210227
  4. BACTRIM [Suspect]
     Active Substance: SULFAMETHOXAZOLE\TRIMETHOPRIM
     Indication: Liver transplant
     Dosage: 400 MG, 1X/DAY
     Route: 048
     Dates: start: 20210214, end: 20210218
  5. PROGRAF [Suspect]
     Active Substance: TACROLIMUS
     Indication: Liver transplant
     Dosage: 28 MG, 1X/DAY
     Route: 048
     Dates: start: 20210209

REACTIONS (2)
  - Agranulocytosis [Not Recovered/Not Resolved]
  - Off label use [Unknown]

NARRATIVE: CASE EVENT DATE: 20210209
